FAERS Safety Report 4423095-8 (Version None)
Quarter: 2004Q3

REPORT INFORMATION
  Report Type: 
  Country: None (occurrence: None)
  Receive Date: 20040713
  Receipt Date: 20030905
  Transmission Date: 20050211
  Serious: No
  Sender: FDA-Public Use
  Company Number: PHEH2003US08100

PATIENT
  Age: 8 Year
  Sex: Male

DRUGS (2)
  1. ELIDEL [Suspect]
     Indication: ECZEMA
     Dosage: TOPICAL
     Route: 061
  2. MULTIVITAMIN [Concomitant]

REACTIONS (1)
  - APPLICATION SITE DISCOLOURATION [None]
